FAERS Safety Report 6914770-1 (Version None)
Quarter: 2010Q3

REPORT INFORMATION
  Report Type: 
  Country: None (occurrence: None)
  Receive Date: 20100809
  Receipt Date: 20100730
  Transmission Date: 20110219
  Serious: Yes (Hospitalization, Other)
  Sender: FDA-Public Use
  Company Number: AU-GENZYME-POMP-1001030

PATIENT
  Sex: Male

DRUGS (3)
  1. MYOZYME [Suspect]
     Indication: GLYCOGEN STORAGE DISEASE TYPE II
     Dosage: 20 MG/KG, QOW
     Route: 042
     Dates: start: 20091201
  2. PHENERGAN [Concomitant]
     Indication: PREMEDICATION
     Dosage: UNK
  3. HYDROCORTISONE [Concomitant]
     Indication: PREMEDICATION
     Dosage: UNK

REACTIONS (6)
  - ASTHMA [None]
  - LIP SWELLING [None]
  - PRURITUS [None]
  - RASH PAPULAR [None]
  - SWOLLEN TONGUE [None]
  - THROMBOSIS [None]
